FAERS Safety Report 22517547 (Version 1)
Quarter: 2023Q2

REPORT INFORMATION
  Report Type: Spontaneous
  Country: FR (occurrence: FR)
  Receive Date: 20230604
  Receipt Date: 20230604
  Transmission Date: 20230722
  Serious: Yes (Other)
  Sender: FDA-Public Use
  Company Number: FR-AFSSAPS-LL2023000828

PATIENT
  Age: 83 Year
  Sex: Female

DRUGS (2)
  1. DOXYCYCLINE [Suspect]
     Active Substance: DOXYCYCLINE
     Indication: Staphylococcal infection
     Dosage: UNK
     Route: 065
     Dates: start: 20230307
  2. TEDIZOLID [Suspect]
     Active Substance: TEDIZOLID
     Indication: Staphylococcal infection
     Dosage: UNK
     Route: 065
     Dates: start: 20230407, end: 20230509

REACTIONS (3)
  - Anaemia [Not Recovered/Not Resolved]
  - Hyperlactacidaemia [Not Recovered/Not Resolved]
  - Thrombocytopenia [Not Recovered/Not Resolved]

NARRATIVE: CASE EVENT DATE: 20230509
